FAERS Safety Report 8191927-6 (Version None)
Quarter: 2012Q1

REPORT INFORMATION
  Report Type: 
  Country: None (occurrence: None)
  Receive Date: 20120307
  Receipt Date: 20120301
  Transmission Date: 20120608
  Serious: Yes (Death)
  Sender: FDA-Public Use
  Company Number: PHEH2012US004905

PATIENT

DRUGS (3)
  1. VALTURNA [Suspect]
  2. TEKTURNA [Suspect]
  3. DIOVAN [Suspect]

REACTIONS (1)
  - CEREBROVASCULAR ACCIDENT [None]
